FAERS Safety Report 12656971 (Version 1)
Quarter: 2016Q3

REPORT INFORMATION
  Report Type: Spontaneous
  Country: JP (occurrence: JP)
  Receive Date: 20160816
  Receipt Date: 20160816
  Transmission Date: 20161109
  Serious: Yes (Other)
  Sender: FDA-Public Use
  Company Number: JP-JT-EVA201501455KERYXP

PATIENT
  Age: 42 Year
  Sex: Male

DRUGS (11)
  1. RIONA [Suspect]
     Active Substance: FERRIC CITRATE ANHYDROUS
     Indication: HYPERPHOSPHATAEMIA
     Dosage: 1500 MG, QD
     Route: 048
     Dates: start: 20150308, end: 20150317
  2. TAKEPRON [Concomitant]
     Active Substance: LANSOPRAZOLE
     Indication: GASTROOESOPHAGEAL REFLUX DISEASE
     Dosage: 15 MG, QD
     Route: 048
     Dates: start: 201501
  3. ARTIST [Concomitant]
     Active Substance: CARVEDILOL
     Indication: CONGESTIVE CARDIOMYOPATHY
     Dosage: 10 MG, BID
     Route: 048
  4. RIONA [Suspect]
     Active Substance: FERRIC CITRATE ANHYDROUS
     Dosage: 6 TABS AFTER MEALS
  5. RIONA [Suspect]
     Active Substance: FERRIC CITRATE ANHYDROUS
     Dosage: 2250 MG, QD
     Route: 048
     Dates: start: 20150318, end: 20150408
  6. RIONA [Suspect]
     Active Substance: FERRIC CITRATE ANHYDROUS
     Dosage: 12 TABS AFTER MEALS
  7. LANTHANUM CARBONATE. [Concomitant]
     Active Substance: LANTHANUM CARBONATE
     Dosage: 2250 MG, QD
     Route: 065
  8. BAYASPIRIN [Concomitant]
     Active Substance: ASPIRIN
     Indication: THROMBOSIS
     Dosage: 100 MG, QD
     Route: 048
     Dates: start: 201501
  9. ROCALTROL [Concomitant]
     Active Substance: CALCITRIOL
     Indication: HYPERPARATHYROIDISM SECONDARY
     Dosage: 2 MICROGRAMS, 3 TIMES/WK
     Route: 042
  10. REGPARA [Concomitant]
     Active Substance: CINACALCET HYDROCHLORIDE
     Indication: HYPERPARATHYROIDISM SECONDARY
     Dosage: 50 MG, QD
     Route: 048
     Dates: start: 201501
  11. TICLOPIDINE HYDROCHLORIDE. [Concomitant]
     Active Substance: TICLOPIDINE HYDROCHLORIDE
     Indication: THROMBOSIS
     Dosage: 100 MG, QD
     Route: 048
     Dates: start: 20150501

REACTIONS (3)
  - Haematocrit increased [Unknown]
  - Blood iron increased [Unknown]
  - Haemoglobin increased [Recovered/Resolved]

NARRATIVE: CASE EVENT DATE: 20150408
